FAERS Safety Report 8538014-2 (Version None)
Quarter: 2012Q3

REPORT INFORMATION
  Report Type: 
  Country: None (occurrence: None)
  Receive Date: 20120725
  Receipt Date: 20120710
  Transmission Date: 20120928
  Serious: Yes (Other)
  Sender: FDA-Public Use
  Company Number: CHPA2012US015435

PATIENT
  Age: 65 Year
  Sex: Female

DRUGS (3)
  1. VITAMIN D [Concomitant]
     Indication: SUPPLEMENTATION THERAPY
     Dosage: UNK, UNK
  2. DRUG THERAPY NOS [Concomitant]
     Dosage: UNK, UNK
     Dates: start: 20080101, end: 20100301
  3. MICONAZOLE NITRATE [Suspect]
     Indication: PROPHYLAXIS
     Dosage: UNK, ONCE A DAY
     Route: 061

REACTIONS (6)
  - DRUG ADMINISTERED AT INAPPROPRIATE SITE [None]
  - NASOPHARYNGITIS [None]
  - OFF LABEL USE [None]
  - ARTHRITIS [None]
  - INCORRECT DRUG ADMINISTRATION DURATION [None]
  - BREAST MASS [None]
